FAERS Safety Report 6733598-9 (Version None)
Quarter: 2010Q2

REPORT INFORMATION
  Report Type: 
  Country: None (occurrence: None)
  Receive Date: 20100520
  Receipt Date: 20100517
  Transmission Date: 20101027
  Serious: Yes (Death, Hospitalization)
  Sender: FDA-Public Use
  Company Number: JP-ASTRAZENECA-2010SE07488

PATIENT
  Age: 28413 Day
  Sex: Male
  Weight: 66 kg

DRUGS (5)
  1. ZOLADEX [Suspect]
     Indication: PROSTATE CANCER
     Route: 058
     Dates: start: 20090629, end: 20091218
  2. PROSTAL [Concomitant]
     Route: 048
     Dates: end: 20091218
  3. ODYNE [Concomitant]
     Route: 048
     Dates: start: 20090629, end: 20091008
  4. ETHINYL ESTRADIOL [Concomitant]
     Route: 048
     Dates: start: 20091009
  5. ETHINYL ESTRADIOL [Concomitant]
     Route: 048
     Dates: start: 20091218, end: 20100119

REACTIONS (6)
  - CARDIAC ARREST [None]
  - DECREASED APPETITE [None]
  - INTERSTITIAL LUNG DISEASE [None]
  - PHARYNGEAL DISORDER [None]
  - RESPIRATORY ARREST [None]
  - SPUTUM RETENTION [None]
